FAERS Safety Report 4294162-7 (Version None)
Quarter: 2004Q1

REPORT INFORMATION
  Report Type: 
  Country: None (occurrence: None)
  Receive Date: 20040211
  Receipt Date: 20040130
  Transmission Date: 20041129
  Serious: Yes (Other)
  Sender: FDA-Public Use
  Company Number: FR-JNJFOC-20040103958

PATIENT
  Age: 81 Year
  Sex: Male
  Weight: 51 kg

DRUGS (5)
  1. REMICADE [Suspect]
     Indication: CROHN'S DISEASE
     Dosage: 300 MG, INTRAVENOUS
     Route: 042
     Dates: start: 20030128
  2. AZATHIOPRINE [Suspect]
     Indication: CROHN'S DISEASE
     Dosage: 100 MG, 1 IN 1 DAY, ORAL
     Route: 048
     Dates: start: 20030128
  3. PREDNISONE [Concomitant]
  4. ZESTRIL [Concomitant]
  5. LASIX [Concomitant]

REACTIONS (2)
  - KERATITIS HERPETIC [None]
  - RETINITIS [None]
